FAERS Safety Report 6301157-8 (Version None)
Quarter: 2009Q3

REPORT INFORMATION
  Report Type: 
  Country: None (occurrence: None)
  Receive Date: 20090807
  Receipt Date: 20070529
  Transmission Date: 20100115
  Serious: Yes (Hospitalization)
  Sender: FDA-Public Use
  Company Number: US-ASTRAZENECA-2008UW22918

PATIENT
  Age: 44 Year
  Sex: Male
  Weight: 71.7 kg

DRUGS (34)
  1. SEROQUEL [Suspect]
     Indication: INSOMNIA
     Dosage: 100 MG, 150 MG, 200 MG, 300 MG AND 600 MG AT BEDTIME
     Route: 048
     Dates: start: 20040210
  2. SEROQUEL [Suspect]
     Indication: MANIA
     Dosage: 100 MG, 150 MG, 200 MG, 300 MG AND 600 MG AT BEDTIME
     Route: 048
     Dates: start: 20040210
  3. SEROQUEL [Suspect]
     Dosage: 300 - 600 MG AT NIGHT
     Route: 048
     Dates: start: 20050506
  4. SEROQUEL [Suspect]
     Dosage: 300 - 600 MG AT NIGHT
     Route: 048
     Dates: start: 20050506
  5. ZYPREXA [Concomitant]
  6. RISPERDAL [Concomitant]
  7. VIREAD [Concomitant]
  8. EPIVIR [Concomitant]
  9. ZIAGEN [Concomitant]
  10. GLUCOTROL [Concomitant]
  11. LOPRESSOR [Concomitant]
  12. GEMFIBROZIL [Concomitant]
  13. ALBUTEROL [Concomitant]
  14. EPZICOM [Concomitant]
  15. KLONOPIN [Concomitant]
  16. GLIPIZIDE [Concomitant]
  17. TRILEPTAL [Concomitant]
  18. NASONEX [Concomitant]
  19. MULTI-VITAMIN [Concomitant]
  20. TYLENOL (CAPLET) [Concomitant]
  21. MYLANTA [Concomitant]
  22. MILK OF MAGNESIA TAB [Concomitant]
  23. AMBIEN [Concomitant]
  24. VISTARIL [Concomitant]
  25. LITHOBID [Concomitant]
  26. LOMOTIL [Concomitant]
  27. AMOXICILLIN [Concomitant]
  28. NICODERM [Concomitant]
  29. ATROVENT [Concomitant]
  30. NYSTATIN [Concomitant]
  31. KALETRA [Concomitant]
  32. WELLBUTRIN [Concomitant]
     Route: 048
     Dates: start: 20050506
  33. DEPAKOTE [Concomitant]
     Route: 048
     Dates: start: 20020506
  34. TRAZODONE HCL [Concomitant]

REACTIONS (3)
  - BIPOLAR I DISORDER [None]
  - DRUG ABUSE [None]
  - HAEMATURIA [None]
